FAERS Safety Report 20354316 (Version 1)
Quarter: 2022Q1

REPORT INFORMATION
  Report Type: Spontaneous
  Country: AT (occurrence: AT)
  Receive Date: 20220120
  Receipt Date: 20220120
  Transmission Date: 20220423
  Serious: Yes (Other)
  Sender: FDA-Public Use
  Company Number: AT-SUNPHARMA-2021RR-320413AA

PATIENT
  Age: 20 Year
  Sex: Female
  Weight: 78 kg

DRUGS (3)
  1. TILDRAKIZUMAB [Suspect]
     Active Substance: TILDRAKIZUMAB
     Indication: Psoriasis
     Dosage: 100 MILLIGRAM, UNK
     Route: 058
     Dates: start: 20210818
  2. TILDRAKIZUMAB [Suspect]
     Active Substance: TILDRAKIZUMAB
     Dosage: 100 MILLIGRAM, UNK
     Route: 058
     Dates: start: 20210915
  3. TILDRAKIZUMAB [Suspect]
     Active Substance: TILDRAKIZUMAB
     Dosage: 100 MILLIGRAM, UNK
     Route: 058
     Dates: start: 20211207

REACTIONS (5)
  - Circulatory collapse [Recovered/Resolved]
  - Nausea [Recovered/Resolved]
  - Vomiting [Recovered/Resolved]
  - Diarrhoea [Recovered/Resolved]
  - Fatigue [Recovered/Resolved]
